FAERS Safety Report 7384720-5 (Version None)
Quarter: 2011Q1

REPORT INFORMATION
  Report Type: 
  Country: None (occurrence: None)
  Receive Date: 20110330
  Receipt Date: 20110317
  Transmission Date: 20110831
  Serious: Yes (Other)
  Sender: FDA-Public Use
  Company Number: PHEH2008US08948

PATIENT
  Sex: Female

DRUGS (51)
  1. ROXICODONE [Concomitant]
     Dosage: UNK
  2. PHOSLO [Concomitant]
     Dosage: UNK
  3. VIOXX [Concomitant]
  4. PROCHLORPERAZINE [Concomitant]
     Dosage: UNK
  5. MIRALAX [Concomitant]
     Dosage: UNK
  6. DECADRON [Concomitant]
     Dosage: 40 MG / QD
  7. VELCADE [Concomitant]
  8. TRAMADOL [Concomitant]
     Dosage: 50 MG TABLETS
  9. NORTRIPTYLINE [Concomitant]
     Dosage: 250 MG TABLETS
  10. ZOLOFT [Concomitant]
     Dosage: UNK
  11. ALUMINIUM HYDROCHLORIDE [Concomitant]
     Dosage: UNK
  12. DOCUSATE [Concomitant]
  13. THALIDOMIDE [Concomitant]
  14. SPIRONOLACTONE ^GALLIER^ [Concomitant]
     Dosage: UNK
     Dates: start: 20070327
  15. AREDIA [Suspect]
     Indication: MULTIPLE MYELOMA
     Dosage: UNK
     Dates: start: 20020824, end: 20021101
  16. DEXAMETHASONE [Concomitant]
     Dosage: UNK
  17. VINCRISTINE [Concomitant]
     Dosage: UNK
     Dates: start: 20030603
  18. ADRIAMYCIN PFS [Concomitant]
     Dosage: UNK
     Dates: start: 20030603
  19. GINSENG [Concomitant]
     Dosage: UNK
  20. ZOMETA [Suspect]
     Indication: MULTIPLE MYELOMA
     Dosage: 4 MG, QMO
     Route: 042
     Dates: start: 20021101, end: 20041026
  21. CYCLOBENZAPRINE [Concomitant]
     Dosage: 10 MG/ 1-2 TABLETS 4X DAILY
  22. DOCUSATE SODIUM W/SENNA [Concomitant]
  23. WELLBUTRIN SR [Concomitant]
  24. FLURBIPROFEN [Concomitant]
     Dosage: 100 MG TABLETS
  25. CHEMOTHERAPEUTICS NOS [Concomitant]
     Dosage: UNK
  26. MORPHINE SULFATE [Concomitant]
     Indication: PAIN
     Dosage: 30 MG / 1-2 TABLETS 4 X DAILY
  27. THALOMID [Concomitant]
     Dosage: 50 MG
  28. METOCLOPRAMIDE [Concomitant]
     Dosage: UNK
  29. ALLOPURINOL [Concomitant]
     Dosage: UNK
  30. DAPSONE [Concomitant]
     Dosage: UNK
  31. METHADONE [Concomitant]
     Dosage: UNK
  32. NEUPOGEN [Concomitant]
  33. ARANESP [Concomitant]
     Dosage: UNK
  34. LORAZEPAM [Concomitant]
  35. CEPHALEXIN [Concomitant]
     Dosage: 500 MG CAPSULES
  36. ZITHROMAX [Concomitant]
     Dosage: UNK
  37. QUININE SULFATE [Concomitant]
     Dosage: UNK
  38. PROTONIX [Concomitant]
     Dosage: UNK
  39. NICODERM [Concomitant]
     Dosage: UNK
  40. CERTAGEN [Concomitant]
     Dosage: UNK
  41. NEPHROCAPS [Concomitant]
     Dosage: UNK
  42. CHLORHEXIDINE DENTAL ^ACO^ [Concomitant]
     Dosage: UNK
  43. CLINDAMYCIN [Concomitant]
     Dosage: 150 MG TABLETS
  44. METHOCARBAMOL [Concomitant]
     Dosage: 750 MG TABLETS
  45. PREVACID [Concomitant]
     Dosage: UNK
  46. VALTREX [Concomitant]
     Dosage: 500 MG
  47. LEXAPRO [Concomitant]
     Dosage: UNK
  48. PERI-COLACE [Concomitant]
     Dosage: UNK
  49. CALCIUM [Concomitant]
  50. PRILOSEC [Concomitant]
  51. PROCRIT                            /00909301/ [Concomitant]

REACTIONS (43)
  - OSTEOMYELITIS [None]
  - INJURY [None]
  - DISABILITY [None]
  - HYPERCALCAEMIA [None]
  - ABSCESS JAW [None]
  - EAR PAIN [None]
  - DEPRESSION [None]
  - PAIN IN JAW [None]
  - OEDEMA PERIPHERAL [None]
  - ALPHA HAEMOLYTIC STREPTOCOCCAL INFECTION [None]
  - PANCYTOPENIA [None]
  - EDENTULOUS [None]
  - TENDONITIS [None]
  - SPINAL OSTEOARTHRITIS [None]
  - OSTEONECROSIS OF JAW [None]
  - MYELOMA RECURRENCE [None]
  - FISTULA DISCHARGE [None]
  - MUSCULOSKELETAL PAIN [None]
  - HYPOAESTHESIA [None]
  - TEMPOROMANDIBULAR JOINT SYNDROME [None]
  - ANXIETY [None]
  - ANHEDONIA [None]
  - SUBMANDIBULAR MASS [None]
  - MYOFASCIAL PAIN SYNDROME [None]
  - ANAEMIA [None]
  - IMPAIRED HEALING [None]
  - SIALOADENITIS [None]
  - PARAESTHESIA [None]
  - PAIN [None]
  - FIBROMYALGIA [None]
  - ARTHRALGIA [None]
  - INTERVERTEBRAL DISC DEGENERATION [None]
  - INTERVERTEBRAL DISC PROTRUSION [None]
  - ENCHONDROMA [None]
  - BONE LESION [None]
  - DISLOCATION OF VERTEBRA [None]
  - HYPOKALAEMIA [None]
  - OPEN WOUND [None]
  - RENAL FAILURE ACUTE [None]
  - DENTURE WEARER [None]
  - PAROTID GLAND ENLARGEMENT [None]
  - PULMONARY FIBROSIS [None]
  - HEADACHE [None]
